FAERS Safety Report 9011910 (Version 1)
Quarter: 2012Q4

REPORT INFORMATION
  Report Type: Spontaneous
  Country: BR (occurrence: None)
  Receive Date: 20121228
  Receipt Date: 20121228
  Transmission Date: 20130627
  Serious: Yes (Hospitalization, Other)
  Sender: FDA-Public Use
  Company Number: DSU-2012-10092

PATIENT
  Age: 53 Year
  Sex: Female

DRUGS (6)
  1. OLMETEC HCT (HYDROCHLOROTHIAZIDE, OLMESARTAN MEDOXOMIL) (TABLET) (HYDROCHLOROTHIAZIDE, OLMESARTAN MEDOXOMIL) [Suspect]
     Indication: BLOOD PRESSURE HIGH
     Dosage: 1/2 of olmetec HCT 40/25
     Route: 048
     Dates: start: 20111010, end: 2012
  2. OLMETEC HCT (HYDROCHLOROTHIAZIDE, OLMESARTAN MEDOXOMIL) (TABLET) (HYDROCHLOROTHIAZIDE, OLMESARTAN MEDOXOMIL) [Suspect]
     Indication: BLOOD PRESSURE HIGH
     Route: 048
  3. OLMETEC ANLO [Suspect]
     Route: 048
     Dates: start: 20120818, end: 20120911
  4. ATORVASTATIN CALCIUM [Suspect]
     Route: 048
     Dates: start: 20080512
  5. ATORVASTATIN CALCIUM [Suspect]
     Route: 048
  6. ATORVASTATIN CALCIUM [Suspect]
     Route: 048
     Dates: start: 2011

REACTIONS (4)
  - VIIth nerve paralysis [None]
  - Blood urine present [None]
  - Protein urine present [None]
  - Procedural haemorrhage [None]
